FAERS Safety Report 10146360 (Version 1)
Quarter: 2014Q2

REPORT INFORMATION
  Report Type: Report from Study
  Country: IT (occurrence: IT)
  Receive Date: 20140501
  Receipt Date: 20140501
  Transmission Date: 20141212
  Serious: Yes (Death)
  Sender: FDA-Public Use
  Company Number: IT-B.I. PHARMACEUTICALS,INC./RIDGEFIELD-2014-BI-19079GD

PATIENT
  Sex: Female

DRUGS (2)
  1. AFATINIB [Suspect]
     Indication: LUNG ADENOCARCINOMA METASTATIC
     Dosage: 40 MG
     Route: 065
  2. AFATINIB [Suspect]
     Dosage: 30 MG
     Route: 065

REACTIONS (5)
  - Neoplasm progression [Fatal]
  - Nausea [Unknown]
  - Vomiting [Unknown]
  - Dizziness [Unknown]
  - Asthenia [Unknown]
